FAERS Safety Report 4290190-6 (Version None)
Quarter: 2004Q1

REPORT INFORMATION
  Report Type: 
  Country: None (occurrence: None)
  Receive Date: 20040209
  Receipt Date: 20040203
  Transmission Date: 20041129
  Serious: Yes (Death)
  Sender: FDA-Public Use
  Company Number: US-JNJFOC-20040102985

PATIENT
  Age: 50 Year
  Sex: Female

DRUGS (17)
  1. DURAGESIC [Suspect]
     Indication: PAIN
     Dosage: SEE IMAGE
     Route: 062
     Dates: end: 20040101
  2. HYDROCODONE (HYDROCODONE) [Concomitant]
  3. PREVACID (PREVACID) [Concomitant]
  4. NYSTATIN POWDER (NYSTATIN) [Concomitant]
  5. BACTRIM (TABLETS) BACTRIM TABLETS [Concomitant]
  6. AZATHIOPRINE (AZATHIOPRINE) TABLETS [Concomitant]
  7. NEURONTIN (GABAPENTIN) TABLETS [Concomitant]
  8. ALLEGRA [Concomitant]
  9. WELLBUTRIN [Concomitant]
  10. FOSAMAX [Concomitant]
  11. ASPIRIN [Concomitant]
  12. CALCIUM/VITAMIN D (CALCIUM WITH VITAMIN D) [Concomitant]
  13. MULTIVITAMIN (MIULTIVITAMINS) TABLETS [Concomitant]
  14. AMITRIPTYLINE HCL [Concomitant]
  15. LISINOPRIL [Concomitant]
  16. VANCOMYCIN [Concomitant]
  17. ERTAPENEM (ALL OTHER THERAPEUTIC PRODUCTS) [Concomitant]

REACTIONS (1)
  - DEATH [None]
